FAERS Safety Report 12280400 (Version 7)
Quarter: 2019Q4

REPORT INFORMATION
  Report Type: Report from Study
  Country: CA (occurrence: CA)
  Receive Date: 20160419
  Receipt Date: 20191018
  Transmission Date: 20200122
  Serious: Yes (Other)
  Sender: FDA-Public Use
  Company Number: CA-ROCHE-1509238

PATIENT
  Age: 57 Year
  Sex: Female

DRUGS (16)
  1. ACTEMRA [Suspect]
     Active Substance: TOCILIZUMAB
     Route: 042
  2. ALENDRONATE [Concomitant]
     Active Substance: ALENDRONATE SODIUM
  3. PERINDOPRIL [Concomitant]
     Active Substance: PERINDOPRIL
  4. ACTEMRA [Suspect]
     Active Substance: TOCILIZUMAB
     Route: 042
     Dates: start: 20150515
  5. OMEPRAZOLE. [Concomitant]
     Active Substance: OMEPRAZOLE
  6. ERDOSTEINE [Concomitant]
     Active Substance: ERDOSTEINE
  7. CLONAZEPAM. [Concomitant]
     Active Substance: CLONAZEPAM
  8. ACTEMRA [Suspect]
     Active Substance: TOCILIZUMAB
     Indication: RHEUMATOID ARTHRITIS
     Route: 058
     Dates: start: 20190607
  9. PREDNISONE. [Concomitant]
     Active Substance: PREDNISONE
  10. COUMADIN [Concomitant]
     Active Substance: WARFARIN SODIUM
  11. ACTEMRA [Suspect]
     Active Substance: TOCILIZUMAB
     Indication: RHEUMATOID ARTHRITIS
     Route: 042
     Dates: start: 20130517
  12. ACTEMRA [Suspect]
     Active Substance: TOCILIZUMAB
     Route: 042
     Dates: start: 20160617
  13. FLEXERIL [Concomitant]
     Active Substance: CYCLOBENZAPRINE HYDROCHLORIDE
  14. ACTEMRA [Suspect]
     Active Substance: TOCILIZUMAB
     Route: 042
     Dates: start: 20150309
  15. NAPROSYN [Concomitant]
     Active Substance: NAPROXEN
     Route: 065
  16. NORVASC [Concomitant]
     Active Substance: AMLODIPINE BESYLATE

REACTIONS (15)
  - Depressive symptom [Recovering/Resolving]
  - Seasonal allergy [Unknown]
  - Headache [Recovering/Resolving]
  - Musculoskeletal stiffness [Unknown]
  - Nodule [Not Recovered/Not Resolved]
  - Back pain [Not Recovered/Not Resolved]
  - Musculoskeletal stiffness [Not Recovered/Not Resolved]
  - Synovitis [Unknown]
  - Oral disorder [Recovering/Resolving]
  - Arthralgia [Unknown]
  - Oedema peripheral [Unknown]
  - Sensory disturbance [Unknown]
  - Iodine allergy [Unknown]
  - Pruritus [Unknown]
  - Food allergy [Unknown]

NARRATIVE: CASE EVENT DATE: 201501
